FAERS Safety Report 8275137-X (Version None)
Quarter: 2012Q2

REPORT INFORMATION
  Report Type: 
  Country: None (occurrence: None)
  Receive Date: 20120411
  Receipt Date: 20120402
  Transmission Date: 20120825
  Serious: No
  Sender: FDA-Public Use
  Company Number: US-BAYER-2012-033336

PATIENT
  Age: 71 Year
  Sex: Female
  Weight: 62 kg

DRUGS (3)
  1. ALEVE (CAPLET) [Suspect]
     Route: 048
  2. NAPROXEN (ALEVE) [Suspect]
     Route: 048
  3. LIPITOR [Concomitant]

REACTIONS (2)
  - ABDOMINAL DISTENSION [None]
  - PAIN [None]
